FAERS Safety Report 13129786 (Version 1)
Quarter: 2017Q1

REPORT INFORMATION
  Report Type: Spontaneous
  Country: US (occurrence: US)
  Receive Date: 20170119
  Receipt Date: 20170119
  Transmission Date: 20170428
  Serious: No
  Sender: FDA-Public Use
  Company Number: US-PFIZER INC-2017023589

PATIENT
  Sex: Female

DRUGS (1)
  1. LYRICA [Suspect]
     Active Substance: PREGABALIN

REACTIONS (5)
  - Balance disorder [Unknown]
  - Bradyphrenia [Unknown]
  - Dry mouth [Unknown]
  - Thinking abnormal [Unknown]
  - Dizziness [Unknown]
